FAERS Safety Report 6828276-1 (Version None)
Quarter: 2010Q3

REPORT INFORMATION
  Report Type: 
  Country: None (occurrence: None)
  Receive Date: 20100709
  Receipt Date: 20070202
  Transmission Date: 20110219
  Serious: No
  Sender: FDA-Public Use
  Company Number: US-PFIZER INC-2007010079

PATIENT
  Sex: Female

DRUGS (18)
  1. CHANTIX [Suspect]
     Indication: EX-TOBACCO USER
     Dates: start: 20061221
  2. ATENOLOL [Concomitant]
  3. AVANDIA [Concomitant]
  4. INSULIN [Concomitant]
  5. GLIPIZIDE [Concomitant]
  6. GLUCOTROL [Concomitant]
  7. VENLAFAXINE [Concomitant]
  8. CALCIUM CARBONATE [Concomitant]
  9. VITAMIN D [Concomitant]
  10. ALL OTHER THERAPEUTIC PRODUCTS [Concomitant]
  11. BABYPRIN [Concomitant]
  12. HYDROCHLOROTHIAZIDE [Concomitant]
  13. LISINOPRIL [Concomitant]
  14. MULTI-VITAMINS [Concomitant]
  15. GLUCOSAMINE [Concomitant]
  16. CHONDROITIN [Concomitant]
  17. LIPITOR [Concomitant]
  18. ZETIA [Concomitant]

REACTIONS (4)
  - ABNORMAL DREAMS [None]
  - FLATULENCE [None]
  - INTENTIONAL DRUG MISUSE [None]
  - WEIGHT INCREASED [None]
